FAERS Safety Report 5646454-4 (Version None)
Quarter: 2008Q1

REPORT INFORMATION
  Report Type: 
  Country: None (occurrence: None)
  Receive Date: 20080303
  Receipt Date: 20080228
  Transmission Date: 20080703
  Serious: Yes (Other)
  Sender: FDA-Public Use
  Company Number: FR-BRISTOL-MYERS SQUIBB COMPANY-13825906

PATIENT
  Age: 47 Year
  Sex: Male

DRUGS (7)
  1. PARAPLATIN [Suspect]
     Indication: NON-SMALL CELL LUNG CANCER
     Route: 042
     Dates: start: 20070302, end: 20070302
  2. SORAFENIB [Suspect]
     Indication: NON-SMALL CELL LUNG CANCER
     Dosage: EARLIER DOSE 400MG ORAL
     Route: 048
     Dates: start: 20070303, end: 20070321
  3. PLACEBO [Suspect]
     Indication: NON-SMALL CELL LUNG CANCER
     Route: 048
     Dates: start: 20070303, end: 20070321
  4. PAXENE [Suspect]
     Indication: NON-SMALL CELL LUNG CANCER
     Route: 042
     Dates: start: 20070302, end: 20070302
  5. TAHOR [Concomitant]
     Indication: HYPERCHOLESTEROLAEMIA
     Route: 048
     Dates: start: 20050101
  6. FONZYLANE [Concomitant]
     Indication: HYPERCHOLESTEROLAEMIA
     Dates: start: 20050101
  7. KARDEGIC [Concomitant]
     Indication: PLATELET AGGREGATION INHIBITION
     Dates: start: 20061101

REACTIONS (1)
  - THROMBOCYTOPENIA [None]
